FAERS Safety Report 8929052 (Version 1)
Quarter: 2012Q4

REPORT INFORMATION
  Report Type: 
  Country: IT (occurrence: IT)
  Receive Date: 20121127
  Receipt Date: 20121127
  Transmission Date: 20130627
  Serious: Yes (Hospitalization)
  Sender: FDA-Public Use
  Company Number: IT-BRISTOL-MYERS SQUIBB COMPANY-17053422

PATIENT
  Age: 71 Year
  Sex: Male

DRUGS (8)
  1. COUMADIN TABS 5 MG [Suspect]
     Indication: ATRIAL FIBRILLATION
     Dosage: 1DF:1dose/as necessary.
     Dates: start: 20050101, end: 20120918
  2. CARDIOASPIRIN [Suspect]
     Indication: CARDIOVASCULAR EVENT PROPHYLAXIS
     Dosage: Cardioaspirin tab 100mg,1DF: 1 dose/die
     Route: 048
     Dates: start: 20050101, end: 20120918
  3. ATENOLOL [Concomitant]
     Indication: HYPERTENSION
     Route: 048
  4. LOSARTAN POTASSIUM [Concomitant]
     Indication: HYPERTENSION
     Route: 048
  5. SIMVASTATIN [Concomitant]
     Indication: HYPERCHOLESTEROLAEMIA
  6. LASIX [Concomitant]
     Indication: HYPERTENSION
     Dosage: Lasix tab25mg,1DF: 1 dose
     Route: 048
  7. NORVASC [Concomitant]
     Indication: HYPERTENSION
     Dosage: Norvasc tab,1 dose
     Route: 048
  8. ANTRA [Concomitant]
     Indication: PROPHYLAXIS AGAINST GASTROINTESTINAL ULCER
     Dosage: Antra 10mg capsules
     Route: 048

REACTIONS (1)
  - Anaemia [Recovering/Resolving]
